FAERS Safety Report 20178880 (Version 1)
Quarter: 2021Q4

REPORT INFORMATION
  Report Type: Spontaneous
  Country: IT (occurrence: IT)
  Receive Date: 20211214
  Receipt Date: 20211214
  Transmission Date: 20220303
  Serious: Yes (Congenital Anomaly, Other)
  Sender: FDA-Public Use
  Company Number: IT-LUPIN PHARMACEUTICALS INC.-2021-24091

PATIENT
  Sex: Female

DRUGS (1)
  1. SERTRALINE [Suspect]
     Active Substance: SERTRALINE HYDROCHLORIDE
     Indication: Depression
     Dosage: UNK
     Route: 064

REACTIONS (6)
  - Myotonic dystrophy [Unknown]
  - Foetal exposure during pregnancy [Unknown]
  - Humerus fracture [Unknown]
  - Foetal malposition [Unknown]
  - Foetal hypokinesia [Unknown]
  - Premature baby [Unknown]
